FAERS Safety Report 21433402 (Version 1)
Quarter: 2022Q4

REPORT INFORMATION
  Report Type: Spontaneous
  Country: US (occurrence: US)
  Receive Date: 20221010
  Receipt Date: 20221010
  Transmission Date: 20230113
  Serious: No
  Sender: FDA-Public Use
  Company Number: US-ALKEM LABORATORIES LIMITED-US-ALKEM-2022-06520

PATIENT
  Age: 9 Year
  Sex: Female

DRUGS (6)
  1. SIROLIMUS [Suspect]
     Active Substance: SIROLIMUS
     Indication: Epstein-Barr virus infection
     Dosage: 1 MILLIGRAM DAILY
     Route: 065
  2. SIROLIMUS [Suspect]
     Active Substance: SIROLIMUS
     Indication: Smooth muscle cell neoplasm
  3. SIROLIMUS [Suspect]
     Active Substance: SIROLIMUS
     Indication: Hepatic neoplasm
  4. PREDNISONE [Concomitant]
     Active Substance: PREDNISONE
     Indication: Epstein-Barr virus infection
     Dosage: UNK
     Route: 065
  5. PREDNISONE [Concomitant]
     Active Substance: PREDNISONE
     Indication: Smooth muscle cell neoplasm
  6. PREDNISONE [Concomitant]
     Active Substance: PREDNISONE
     Indication: Hepatic neoplasm

REACTIONS (1)
  - Therapy partial responder [Unknown]
